FAERS Safety Report 8836630 (Version 2)
Quarter: 2012Q4

REPORT INFORMATION
  Report Type: Spontaneous
  Country: JP (occurrence: None)
  Receive Date: 20121010
  Receipt Date: 20121105
  Transmission Date: 20130627
  Serious: Yes (Death, Life-Threatening, Other)
  Sender: FDA-Public Use
  Company Number: ADR-2012-01825

PATIENT
  Age: 10 Year
  Sex: Female

DRUGS (1)
  1. GABALON [Suspect]

REACTIONS (5)
  - Cardio-respiratory arrest [None]
  - Respiratory tract infection [None]
  - Hyperhidrosis [None]
  - Acute respiratory failure [None]
  - Altered state of consciousness [None]
